FAERS Safety Report 13721105 (Version 1)
Quarter: 2017Q3

REPORT INFORMATION
  Report Type: Spontaneous
  Country: US (occurrence: US)
  Receive Date: 20170705
  Receipt Date: 20170705
  Transmission Date: 20171127
  Serious: No
  Sender: FDA-Public Use
  Company Number: None

PATIENT
  Age: 57 Year
  Sex: Female
  Weight: 69.75 kg

DRUGS (3)
  1. OTREXUP [Suspect]
     Active Substance: METHOTREXATE
     Indication: PATHOLOGICAL FRACTURE
     Dosage: OTHER DOSE:MG;OTHER FREQUENCY:ONCE WEEKLY;?
     Route: 058
  2. OTREXUP [Suspect]
     Active Substance: METHOTREXATE
     Indication: PRODUCT USED FOR UNKNOWN INDICATION
     Dosage: OTHER DOSE:MG;OTHER FREQUENCY:ONCE WEEKLY;?
     Route: 058
  3. OTREXUP [Suspect]
     Active Substance: METHOTREXATE
     Indication: OSTEOPOROSIS
     Dosage: OTHER DOSE:MG;OTHER FREQUENCY:ONCE WEEKLY;?
     Route: 058

REACTIONS (1)
  - Foot fracture [None]
